FAERS Safety Report 23053098 (Version 7)
Quarter: 2023Q4

REPORT INFORMATION
  Report Type: Report from Study
  Country: NL (occurrence: NL)
  Receive Date: 20231011
  Receipt Date: 20231208
  Transmission Date: 20240110
  Serious: Yes (Life-Threatening, Hospitalization, Other)
  Sender: FDA-Public Use
  Company Number: NL-ABBVIE-5444505

PATIENT
  Age: 75 Year
  Sex: Male

DRUGS (14)
  1. CARBIDOPA\LEVODOPA [Suspect]
     Active Substance: CARBIDOPA\LEVODOPA
     Indication: Parkinson^s disease
     Dosage: MD: 7.0ML; CD: 7.4ML/H; ED: 4.5ML   ?DURATION TEXT: REMAINS AT 24 HOURS
     Route: 050
     Dates: start: 20230912, end: 20231023
  2. CARBIDOPA\LEVODOPA [Suspect]
     Active Substance: CARBIDOPA\LEVODOPA
     Dosage: ED 3.5 ML; CND 5.7 ML/H
     Route: 050
     Dates: start: 20231025, end: 20231026
  3. CARBIDOPA\LEVODOPA [Suspect]
     Active Substance: CARBIDOPA\LEVODOPA
     Dosage: CND DECREASED BY 0.2 ML/H, CD CHANGED TO 7.7, THEN 7.5 ML/H, MD: 6.5 ML?REMAINS AT 24 HOURS
     Route: 050
     Dates: start: 20231023, end: 20231025
  4. CARBIDOPA\LEVODOPA [Suspect]
     Active Substance: CARBIDOPA\LEVODOPA
     Dosage: CND: 5.9ML/H,? REMAINS AT 24 HOURS
     Route: 050
     Dates: start: 20231121, end: 20231127
  5. CARBIDOPA\LEVODOPA [Suspect]
     Active Substance: CARBIDOPA\LEVODOPA
     Dosage: MD 6.0 ML; CD 7.3 ML/H; ED 5.0 ML? REMAINS AT 16 HOURS
     Route: 050
     Dates: start: 20231026, end: 20231030
  6. CARBIDOPA\LEVODOPA [Suspect]
     Active Substance: CARBIDOPA\LEVODOPA
     Dosage: REMAINS AT 24 HOURS
     Route: 050
     Dates: start: 20171201
  7. CARBIDOPA\LEVODOPA [Suspect]
     Active Substance: CARBIDOPA\LEVODOPA
     Dosage: ED 3.5 ML; CND 5.7 ML/H, MD 6.5 ML; CD 7.3 ML/H; ED 5.0 ML? REMAINS AT 24  HOURS
     Route: 050
     Dates: start: 20231025, end: 20231025
  8. CARBIDOPA\LEVODOPA [Suspect]
     Active Substance: CARBIDOPA\LEVODOPA
     Dosage: MD 5.0 ML; CD 7.1 ML/H; ED 5.0 ML? REMAINS AT 16 HOURS
     Route: 050
     Dates: start: 20231030, end: 20231102
  9. CARBIDOPA\LEVODOPA [Suspect]
     Active Substance: CARBIDOPA\LEVODOPA
     Dosage: MD: 5.0ML; CD: 7.1ML/H; ED: 5.0ML; CND: 6.1ML/H,
     Route: 050
     Dates: start: 20231127
  10. CARBIDOPA\LEVODOPA [Suspect]
     Active Substance: CARBIDOPA\LEVODOPA
     Dosage: MD: 5.0ML; CD: 6.9ML/H; ED: 5.0ML, REMAINS AT 24 HOURS
     Route: 050
     Dates: start: 20231102, end: 20231121
  11. POLYETHYLENE GLYCOLS [Concomitant]
     Active Substance: POLYETHYLENE GLYCOLS
     Indication: Bowel movement irregularity
     Dosage: 3 SACHET
  12. BENSERAZIDE HYDROCHLORIDE\LEVODOPA [Concomitant]
     Active Substance: BENSERAZIDE HYDROCHLORIDE\LEVODOPA
     Indication: Parkinson^s disease
  13. SYMMETREL [Concomitant]
     Active Substance: AMANTADINE HYDROCHLORIDE
     Indication: Parkinson^s disease
  14. MOVICOLON [Concomitant]
     Active Substance: POLYETHYLENE GLYCOL 3350\POTASSIUM CHLORIDE\SODIUM BICARBONATE\SODIUM CHLORIDE
     Indication: Product used for unknown indication

REACTIONS (13)
  - Mechanical ventilation [Recovered/Resolved]
  - Pneumonia aspiration [Recovered/Resolved]
  - Gait disturbance [Not Recovered/Not Resolved]
  - Dyskinesia [Not Recovered/Not Resolved]
  - Enteral nutrition [Recovered/Resolved]
  - Vomiting [Unknown]
  - Walking aid user [Not Recovered/Not Resolved]
  - C-reactive protein increased [Unknown]
  - Oxygen saturation decreased [Unknown]
  - On and off phenomenon [Not Recovered/Not Resolved]
  - Speech disorder [Not Recovered/Not Resolved]
  - Tremor [Not Recovered/Not Resolved]
  - Nutritional supplementation [Not Recovered/Not Resolved]

NARRATIVE: CASE EVENT DATE: 20231001
